FAERS Safety Report 6774222-9 (Version None)
Quarter: 2010Q2

REPORT INFORMATION
  Report Type: 
  Country: None (occurrence: None)
  Receive Date: 20100520
  Receipt Date: 20090810
  Transmission Date: 20101027
  Serious: Yes (Other)
  Sender: FDA-Public Use
  Company Number: 2005086452

PATIENT
  Age: 56 Year
  Sex: Female

DRUGS (7)
  1. PROVERA [Suspect]
     Indication: HORMONE REPLACEMENT THERAPY
     Dosage: 10 MG, ORAL
     Route: 048
     Dates: start: 19890629, end: 20020901
  2. PREMARIN [Suspect]
     Indication: HORMONE REPLACEMENT THERAPY
     Dosage: 1.25 MG, ORAL
     Route: 048
     Dates: start: 19890629, end: 20020901
  3. PREMPRO [Suspect]
     Indication: HORMONE REPLACEMENT THERAPY
     Dates: start: 19890629, end: 20020901
  4. PRAVACHOL [Concomitant]
  5. NORVASC [Concomitant]
  6. DIOVANE (VALSARTAN) [Concomitant]
  7. CLONIDINE [Concomitant]

REACTIONS (1)
  - BREAST CANCER IN SITU [None]
